FAERS Safety Report 8235540-0 (Version None)
Quarter: 2012Q1

REPORT INFORMATION
  Report Type: 
  Country: None (occurrence: None)
  Receive Date: 20120326
  Receipt Date: 20120323
  Transmission Date: 20120608
  Serious: Yes (Disabling, Other)
  Sender: FDA-Public Use
  Company Number: GB-BAYER-2012-023905

PATIENT
  Age: 78 Year
  Sex: Male
  Weight: 79.1 kg

DRUGS (57)
  1. SORAFENIB (RAF KINASE INHIBITOR) [Suspect]
     Dosage: 400 MG, BID CYCLE 1, DAY 22
     Route: 048
     Dates: start: 20101112, end: 20101202
  2. SORAFENIB (RAF KINASE INHIBITOR) [Suspect]
     Dosage: 400 MG, QD CYCLE 5, DAY 1
     Route: 048
     Dates: start: 20110401, end: 20110512
  3. SORAFENIB (RAF KINASE INHIBITOR) [Suspect]
     Dosage: 400 MG, QD CYCLE 9, DAY 22
     Route: 048
     Dates: start: 20111007, end: 20111027
  4. PLACEBO [Suspect]
     Dosage: 100 MG, QD CYCLE 8,DAY 1
     Route: 048
     Dates: start: 20110810, end: 20110825
  5. PLACEBO [Suspect]
     Dosage: 100 MG, QD CYCLE 12 ,DAY 22
     Route: 048
     Dates: start: 20120210, end: 20120301
  6. CANDESARTAN CILEXETIL [Concomitant]
     Indication: HYPERTENSION
     Dosage: TOTAL DAILY DOSE 8 MG
     Route: 048
     Dates: start: 20041001
  7. SORAFENIB (RAF KINASE INHIBITOR) [Suspect]
     Dosage: 400 MG, QD CYCLE 12, DAY 1
     Route: 048
     Dates: start: 20120120, end: 20120209
  8. SORAFENIB (RAF KINASE INHIBITOR) [Suspect]
     Dosage: 400 MG, QD CYCLE 13, DAY 1
     Route: 048
     Dates: start: 20120302, end: 20120313
  9. PLACEBO [Suspect]
     Dosage: 150 MG, QD CYCLE 2 ,DAY 1
     Route: 048
     Dates: start: 20101203, end: 20101223
  10. PLACEBO [Suspect]
     Dosage: 150 MG, QD CYCLE 2 ,DAY 22
     Route: 048
     Dates: start: 20101224, end: 20110106
  11. PLACEBO [Suspect]
     Dosage: 100 MG, QD CYCLE 13 ,DAY 1
     Route: 048
     Dates: start: 20120302, end: 20120313
  12. DOMPERIDONE [Concomitant]
     Indication: NAUSEA
     Dosage: PRN
     Route: 048
     Dates: start: 20101101
  13. ONDANSETRON [Concomitant]
     Indication: NAUSEA
     Dosage: UNK
     Route: 048
     Dates: start: 20110801
  14. SORAFENIB (RAF KINASE INHIBITOR) [Suspect]
     Dosage: 400 MG, QD CYCLE 3, DAY 22
     Route: 048
     Dates: start: 20110128, end: 20110217
  15. SORAFENIB (RAF KINASE INHIBITOR) [Suspect]
     Dosage: 400 MG, QD CYCLE 4, DAY 22
     Route: 048
     Dates: start: 20110311, end: 20110331
  16. SORAFENIB (RAF KINASE INHIBITOR) [Suspect]
     Dosage: 400 MG, QD CYCLE 8, DAY 1
     Route: 048
     Dates: start: 20110810, end: 20110825
  17. PLACEBO [Suspect]
     Dosage: 150 MG, QD CYCLE 1 ,DAY 22
     Route: 048
     Dates: start: 20101112, end: 20101202
  18. PLACEBO [Suspect]
     Dosage: 100 MG, QD CYCLE 9 ,DAY 1
     Route: 048
     Dates: start: 20110916, end: 20111006
  19. PLACEBO [Suspect]
     Dosage: 100 MG, QD CYCLE 12 ,DAY 1
     Route: 048
     Dates: start: 20120120, end: 20120209
  20. SORAFENIB (RAF KINASE INHIBITOR) [Suspect]
     Indication: HEPATIC NEOPLASM MALIGNANT
     Dosage: 400 MG, BID CYCLE 1, DAY 1
     Route: 048
     Dates: start: 20101015, end: 20101104
  21. SORAFENIB (RAF KINASE INHIBITOR) [Suspect]
     Dosage: 400 MG, BID CYCLE 2, DAY 22
     Route: 048
     Dates: start: 20101224, end: 20110106
  22. SORAFENIB (RAF KINASE INHIBITOR) [Suspect]
     Dosage: 400 MG, QD CYCLE 8, DAY 22
     Route: 048
     Dates: start: 20110826, end: 20110915
  23. SORAFENIB (RAF KINASE INHIBITOR) [Suspect]
     Dosage: 400 MG, QD CYCLE 9, DAY 1
     Route: 048
     Dates: start: 20110916, end: 20111006
  24. PLACEBO [Suspect]
     Indication: HEPATIC NEOPLASM MALIGNANT
     Dosage: 150 MG, QD CYCLE 1 ,DAY 1
     Route: 048
     Dates: start: 20101015, end: 20101104
  25. PLACEBO [Suspect]
     Dosage: 100 MG, QD CYCLE 4,DAY 1
     Route: 048
     Dates: start: 20110218, end: 20110310
  26. PLACEBO [Suspect]
     Dosage: 100 MG, QD CYCLE 5,DAY 1
     Route: 048
     Dates: start: 20110401, end: 20110512
  27. PLACEBO [Suspect]
     Dosage: 100 MG, QD CYCLE 9 ,DAY 22
     Route: 048
     Dates: start: 20111007, end: 20111027
  28. PLACEBO [Suspect]
     Dosage: 100 MG, QD CYCLE 11 ,DAY 1
     Route: 048
     Dates: start: 20111209, end: 20111229
  29. LACTULOSE [Concomitant]
     Indication: CONSTIPATION
     Dosage: UNK
     Route: 048
     Dates: start: 20110801
  30. SORAFENIB (RAF KINASE INHIBITOR) [Suspect]
     Dosage: 400 MG, QD CYCLE 7, DAY 22
     Route: 048
     Dates: start: 20110715, end: 20110809
  31. PLACEBO [Suspect]
     Dosage: 100 MG, QD CYCLE 3,DAY 22
     Route: 048
     Dates: start: 20110128, end: 20110217
  32. RANITIDINE [Concomitant]
     Indication: GASTROOESOPHAGEAL REFLUX DISEASE
     Dosage: TOTAL DAILY DOSE 300 MG
     Route: 048
     Dates: start: 20101001
  33. SORAFENIB (RAF KINASE INHIBITOR) [Suspect]
     Dosage: 400 MG, QD CYCLE 6, DAY 22
     Route: 048
     Dates: start: 20110603, end: 20110627
  34. SORAFENIB (RAF KINASE INHIBITOR) [Suspect]
     Dosage: 400 MG, QD CYCLE 10, DAY 1
     Route: 048
     Dates: start: 20111028, end: 20111117
  35. SORAFENIB (RAF KINASE INHIBITOR) [Suspect]
     Dosage: 400 MG, QD CYCLE 11, DAY 1
     Route: 048
     Dates: start: 20111209, end: 20111229
  36. SORAFENIB (RAF KINASE INHIBITOR) [Suspect]
     Dosage: 400 MG, QD CYCLE 11, DAY 22
     Route: 048
     Dates: start: 20111230, end: 20120119
  37. SORAFENIB (RAF KINASE INHIBITOR) [Suspect]
     Dosage: 400 MG, QD CYCLE 12, DAY 22
     Route: 048
     Dates: start: 20120210, end: 20120301
  38. PLACEBO [Suspect]
     Dosage: 100 MG, QD CYCLE 4,DAY 22
     Route: 048
     Dates: start: 20110311, end: 20110331
  39. PLACEBO [Suspect]
     Dosage: 100 MG, QD CYCLE 8,DAY 22
     Route: 048
     Dates: start: 20110826, end: 20110915
  40. PLACEBO [Suspect]
     Dosage: 100 MG, QD CYCLE 10 ,DAY 1
     Route: 048
     Dates: start: 20111028, end: 20111117
  41. TOLBUTAMIDE [Concomitant]
     Indication: DIABETES MELLITUS
     Dosage: TOTAL DAILY DOSE 2 G
     Route: 048
     Dates: start: 19960901
  42. SENNA [Concomitant]
     Indication: CONSTIPATION
     Dosage: TOTAL DAILY DOSE 15 MG
     Route: 048
     Dates: start: 20101105
  43. DIPROBASE [Concomitant]
     Indication: UNEVALUABLE EVENT
     Dosage: PRN
     Route: 061
     Dates: start: 20101224
  44. CHLORAMPHENICOL [Concomitant]
     Indication: EYE INFECTION
     Dosage: UNK
     Route: 047
     Dates: start: 20120101
  45. ENOXAPARIN SODIUM [Concomitant]
     Indication: DEEP VEIN THROMBOSIS
     Dosage: TOTAL DAILY DOSE 20 MG
     Route: 058
     Dates: start: 20110101, end: 20120201
  46. SORAFENIB (RAF KINASE INHIBITOR) [Suspect]
     Dosage: 400 MG, BID CYCLE 2, DAY 1
     Route: 048
     Dates: start: 20101203, end: 20101223
  47. SORAFENIB (RAF KINASE INHIBITOR) [Suspect]
     Dosage: 400 MG, QD CYCLE 3, DAY 1
     Route: 048
     Dates: start: 20110107, end: 20110127
  48. SORAFENIB (RAF KINASE INHIBITOR) [Suspect]
     Dosage: 400 MG, QD CYCLE 4, DAY 1
     Route: 048
     Dates: start: 20110218, end: 20110310
  49. SORAFENIB (RAF KINASE INHIBITOR) [Suspect]
     Dosage: 400 MG, QD CYCLE 6, DAY 1
     Route: 048
     Dates: start: 20110513, end: 20110602
  50. SORAFENIB (RAF KINASE INHIBITOR) [Suspect]
     Dosage: 400 MG, QD CYCLE 10, DAY 22
     Route: 048
     Dates: start: 20111118, end: 20111208
  51. PLACEBO [Suspect]
     Dosage: 100 MG, QD CYCLE 3,DAY 1
     Route: 048
     Dates: start: 20110107, end: 20110127
  52. PLACEBO [Suspect]
     Dosage: 100 MG, QD CYCLE 6,DAY 1
     Route: 048
     Dates: start: 20110513, end: 20110602
  53. PLACEBO [Suspect]
     Dosage: 100 MG, QD CYCLE 7,DAY 1
     Route: 048
     Dates: start: 20110628, end: 20110714
  54. PLACEBO [Suspect]
     Dosage: 100 MG, QD CYCLE 11 ,DAY 22
     Route: 048
     Dates: start: 20111230, end: 20120119
  55. METFORMIN HCL [Concomitant]
     Indication: DIABETES MELLITUS
     Dosage: TOTAL DAILY DOSE 1500 MG
     Route: 048
     Dates: start: 20010701
  56. PLACEBO [Suspect]
     Dosage: 100 MG, QD CYCLE 7,DAY 22
     Route: 048
     Dates: start: 20110715, end: 20110809
  57. PLACEBO [Suspect]
     Dosage: 100 MG, QD CYCLE 10 ,DAY 22
     Route: 048
     Dates: start: 20111118, end: 20111208

REACTIONS (1)
  - RETINAL VEIN OCCLUSION [None]
